FAERS Safety Report 6981526-3 (Version None)
Quarter: 2010Q3

REPORT INFORMATION
  Report Type: 
  Country: None (occurrence: None)
  Receive Date: 20100914
  Receipt Date: 20100907
  Transmission Date: 20110219
  Serious: Yes (Hospitalization)
  Sender: FDA-Public Use
  Company Number: PHHO2010DE13646

PATIENT
  Sex: Male
  Weight: 100 kg

DRUGS (8)
  1. STI571/CGP57148B T35717+CAPS [Suspect]
     Indication: CHRONIC MYELOID LEUKAEMIA
     Dosage: 400 MG
     Route: 048
     Dates: start: 20030116
  2. METOPROLOL SUCCINATE [Concomitant]
  3. LASIX [Concomitant]
  4. ASPIRIN [Concomitant]
  5. AMAREL [Concomitant]
  6. ALLOPURINOL [Concomitant]
  7. TROMCARDIN [Concomitant]
  8. AMIODARONE HCL [Concomitant]

REACTIONS (5)
  - ASCITES [None]
  - CARDIAC FAILURE [None]
  - DYSPNOEA EXERTIONAL [None]
  - ISCHAEMIC CARDIOMYOPATHY [None]
  - PLEURAL EFFUSION [None]
